FAERS Safety Report 25895425 (Version 1)
Quarter: 2025Q4

REPORT INFORMATION
  Report Type: Spontaneous
  Country: DO (occurrence: DO)
  Receive Date: 20251008
  Receipt Date: 20251008
  Transmission Date: 20260118
  Serious: Yes (Other)
  Sender: RANBAXY
  Company Number: DO-SUN PHARMACEUTICAL INDUSTRIES LTD-2025R1-530393

PATIENT
  Age: 37 Year
  Sex: Male

DRUGS (5)
  1. TEGRETOL [Suspect]
     Active Substance: CARBAMAZEPINE
     Indication: Epilepsy
     Dosage: 400 MILLIGRAM
     Route: 065
  2. DIVALPROEX SODIUM [Concomitant]
     Active Substance: DIVALPROEX SODIUM
     Indication: Epilepsy
     Dosage: 500 MILLIGRAM, 2.5 TABLET, DAILY
     Route: 048
  3. ESCITALOPRAM [Concomitant]
     Active Substance: ESCITALOPRAM OXALATE
     Indication: Epilepsy
     Dosage: 20 MILLIGRAM, OD
     Route: 065
  4. CLOBAZAM [Concomitant]
     Active Substance: CLOBAZAM
     Indication: Epilepsy
     Dosage: 10 MILLIGRAM (2.5 TABLETS DAILY), AT NIGHT
     Route: 048
  5. BRIVARACETAM [Concomitant]
     Active Substance: BRIVARACETAM
     Indication: Epilepsy
     Dosage: 100 MILLIGRAM, BID
     Route: 048

REACTIONS (3)
  - Drug resistance [Unknown]
  - Toxicity to various agents [Recovered/Resolved]
  - Dehydration [Recovered/Resolved]
